FAERS Safety Report 14839597 (Version 2)
Quarter: 2018Q4

REPORT INFORMATION
  Report Type: Spontaneous
  Country: IT (occurrence: IT)
  Receive Date: 20180502
  Receipt Date: 20181214
  Transmission Date: 20190204
  Serious: Yes (Hospitalization, Other)
  Sender: FDA-Public Use
  Company Number: PHHY2017IT161200

PATIENT
  Sex: Male
  Weight: 4 kg

DRUGS (3)
  1. EUTIROX [Concomitant]
     Active Substance: LEVOTHYROXINE SODIUM
     Indication: FOETAL EXPOSURE DURING PREGNANCY
     Dosage: MATERNAL DOSE: 75 MCG QD
     Route: 064
  2. GILENYA [Suspect]
     Active Substance: FINGOLIMOD HYDROCHLORIDE
     Indication: FOETAL EXPOSURE DURING PREGNANCY
     Dosage: MATERNAL DOSE:0.5 MG QD
     Route: 064
     Dates: start: 20150513, end: 20170105
  3. FOLIC ACID. [Concomitant]
     Active Substance: FOLIC ACID
     Indication: FOETAL EXPOSURE DURING PREGNANCY
     Dosage: MATERNAL DOSE: 5 MG QD
     Route: 064
     Dates: start: 201612, end: 201709

REACTIONS (5)
  - Bronchiolitis [Recovered/Resolved]
  - Bronchiolitis [Recovered/Resolved]
  - Foetal exposure during pregnancy [Recovered/Resolved]
  - Large for dates baby [Unknown]
  - Impetigo [Recovered/Resolved]

NARRATIVE: CASE EVENT DATE: 20170909
